FAERS Safety Report 5356193-5 (Version None)
Quarter: 2007Q2

REPORT INFORMATION
  Report Type: 
  Country: None (occurrence: None)
  Receive Date: 20070613
  Receipt Date: 20070602
  Transmission Date: 20071010
  Serious: Yes (Hospitalization)
  Sender: FDA-Public Use
  Company Number: US-PFIZER INC-2007044388

PATIENT
  Sex: Male
  Weight: 85.8 kg

DRUGS (14)
  1. SUTENT [Suspect]
     Indication: RENAL CANCER METASTATIC
     Dosage: TEXT:50 - 50-FREQ:2/1-DAILY X 14 DAYS - EVERYDAY X 14 DAYS
     Route: 048
     Dates: start: 20070508
  2. GEMCITABINE [Suspect]
     Indication: RENAL CANCER METASTATIC
     Dosage: TEXT:1000 (UD) - 2114 (TDD)-FREQ:DAYS 1 AND 8 - DAYS 1 AND 8
     Route: 042
  3. ATIVAN [Concomitant]
     Indication: INSOMNIA
  4. ATIVAN [Concomitant]
     Indication: ANXIETY
  5. PERCOCET [Concomitant]
     Indication: PAIN
     Dosage: TEXT:1-2 TABS-FREQ:PRN
  6. ASCORBIC ACID [Concomitant]
     Indication: SUPPLEMENTATION THERAPY
  7. VITAMIN B-12 [Concomitant]
     Indication: SUPPLEMENTATION THERAPY
  8. FERROUS SULFATE [Concomitant]
     Indication: SUPPLEMENTATION THERAPY
  9. TYLENOL [Concomitant]
     Indication: PYREXIA
  10. PROCRIT [Concomitant]
     Indication: HAEMOGLOBIN DECREASED
     Dosage: TEXT:40,000 UNITS
     Route: 058
  11. SENOKOT [Concomitant]
     Indication: CONSTIPATION
     Dosage: TEXT:1-2 TABS-FREQ:PRN
  12. IBUPROFEN [Concomitant]
     Indication: PAIN
  13. TUMS [Concomitant]
     Indication: GASTROOESOPHAGEAL REFLUX DISEASE
     Dosage: FREQ:PRN
  14. TUMS [Concomitant]
     Indication: BLOOD CALCIUM DECREASED

REACTIONS (1)
  - PNEUMONIA [None]
